FAERS Safety Report 7353456-9 (Version None)
Quarter: 2011Q1

REPORT INFORMATION
  Report Type: 
  Country: None (occurrence: None)
  Receive Date: 20110315
  Receipt Date: 20110304
  Transmission Date: 20110831
  Serious: Yes (Hospitalization, Other)
  Sender: FDA-Public Use
  Company Number: US-SANOFI-AVENTIS-2010SA054764

PATIENT
  Sex: Female

DRUGS (5)
  1. AMLODIPINE [Concomitant]
  2. METOPROLOL [Concomitant]
     Dates: start: 20110101
  3. PLAVIX [Suspect]
     Route: 048
     Dates: start: 20100601
  4. METOPROLOL [Concomitant]
     Dates: end: 20110101
  5. LISINOPRIL [Concomitant]

REACTIONS (8)
  - PNEUMONIA [None]
  - MUSCULAR WEAKNESS [None]
  - PERIPHERAL ARTERIAL OCCLUSIVE DISEASE [None]
  - DYSSTASIA [None]
  - FATIGUE [None]
  - ASTHENIA [None]
  - CHEST PAIN [None]
  - HEART RATE DECREASED [None]
